FAERS Safety Report 9531039 (Version 1)
Quarter: 2013Q2

REPORT INFORMATION
  Report Type: Spontaneous
  Country: GB (occurrence: None)
  Receive Date: 20130426
  Receipt Date: 20130426
  Transmission Date: 20140414
  Serious: Yes (Disabling)
  Sender: FDA-Public Use
  Company Number: 2013-00751

PATIENT
  Age: 51 Year
  Sex: Male
  Weight: 117.6 kg

DRUGS (5)
  1. QUETIAPINE (UNKNOWN) [Suspect]
     Indication: PRODUCT USED FOR UNKNOWN INDICATION
  2. KRACHIS OIL+CHLORBUTOL+PARADICHLOROBENZENE (CERUMOL) (UNKNOWN) [Concomitant]
  3. OLANZAPINE (UNKNOWN) [Concomitant]
  4. TRAZODONE (UNKNOWN) [Concomitant]
  5. ZOPICLONE(UNKNOWN)(ZOPICLONE) [Concomitant]

REACTIONS (3)
  - Dizziness [None]
  - Nausea [None]
  - Vomiting [None]
